FAERS Safety Report 5943716-8 (Version None)
Quarter: 2008Q4

REPORT INFORMATION
  Report Type: 
  Country: None (occurrence: None)
  Receive Date: 20081106
  Receipt Date: 20081010
  Transmission Date: 20090506
  Serious: No
  Sender: FDA-Public Use
  Company Number: US-ABBOTT-08P-163-0442402-00

PATIENT
  Sex: Female

DRUGS (2)
  1. KALETRA [Suspect]
     Indication: ANTIRETROVIRAL THERAPY
     Route: 048
     Dates: start: 20080116
  2. LAMIVUDINE + ZIDOVUDINE [Suspect]
     Indication: ANTIRETROVIRAL THERAPY
     Route: 048
     Dates: start: 20080116

REACTIONS (4)
  - ABDOMINAL PAIN [None]
  - CERVICAL CYST [None]
  - HYDROMETRA [None]
  - OVARIAN CYST [None]
